FAERS Safety Report 18579859 (Version 1)
Quarter: 2020Q4

REPORT INFORMATION
  Report Type: Spontaneous
  Country: US (occurrence: US)
  Receive Date: 20201204
  Receipt Date: 20201204
  Transmission Date: 20210114
  Serious: No
  Sender: FDA-Public Use
  Company Number: US-BAUSCH-BL-2020-033308

PATIENT
  Age: 59 Year
  Sex: Male

DRUGS (2)
  1. LUMIFY [Suspect]
     Active Substance: BRIMONIDINE TARTRATE
     Indication: OCULAR HYPERAEMIA
     Dosage: USED SINGLE USE SAMPLE VIALS
     Route: 047
     Dates: start: 2020, end: 2020
  2. BENZALKONIUM CHLORIDE. [Suspect]
     Active Substance: BENZALKONIUM CHLORIDE
     Indication: OCULAR HYPERAEMIA
     Dosage: USED SINGLE USE SAMPLE VIALS
     Route: 047
     Dates: start: 2020, end: 2020

REACTIONS (3)
  - Eye paraesthesia [Recovered/Resolved]
  - Eyelid disorder [Recovered/Resolved]
  - Reaction to excipient [Recovered/Resolved]

NARRATIVE: CASE EVENT DATE: 2020
